FAERS Safety Report 9803866 (Version 2)
Quarter: 2014Q3

REPORT INFORMATION
  Report Type: Spontaneous
  Country: US (occurrence: US)
  Receive Date: 20140108
  Receipt Date: 20140812
  Transmission Date: 20150326
  Serious: Yes (Other)
  Sender: FDA-Public Use
  Company Number: US-009507513-1401USA002038

PATIENT
  Sex: Female

DRUGS (3)
  1. ALDACTONE [Concomitant]
     Active Substance: SPIRONOLACTONE
     Indication: PRODUCT USED FOR UNKNOWN INDICATION
  2. NUVARING [Suspect]
     Active Substance: ETHINYL ESTRADIOL\ETONOGESTREL
     Indication: CONTRACEPTION
     Route: 067
  3. METFORMIN [Concomitant]
     Active Substance: METFORMIN HYDROCHLORIDE
     Indication: PRODUCT USED FOR UNKNOWN INDICATION

REACTIONS (14)
  - Polycystic ovaries [Unknown]
  - Pulmonary mass [Unknown]
  - Rhinitis [Unknown]
  - Deep vein thrombosis [Unknown]
  - Thrombolysis [Unknown]
  - Haemoglobin decreased [Recovered/Resolved]
  - Transfusion [Unknown]
  - Spinal fracture [Unknown]
  - Phlebitis [Unknown]
  - Headache [Unknown]
  - Seasonal allergy [Unknown]
  - Pulmonary embolism [Unknown]
  - Pneumonia [Unknown]
  - Stent placement [Unknown]

NARRATIVE: CASE EVENT DATE: 201202
